FAERS Safety Report 9662181 (Version 1)
Quarter: 2013Q4

REPORT INFORMATION
  Report Type: Spontaneous
  Country: US (occurrence: US)
  Receive Date: 20131031
  Receipt Date: 20131031
  Transmission Date: 20140711
  Serious: No
  Sender: FDA-Public Use
  Company Number: US-PURDUE-USA-2011-0068993

PATIENT
  Sex: Male

DRUGS (2)
  1. OXYCONTIN (NDA 22-272) [Suspect]
     Indication: ANALGESIC THERAPY
     Dosage: 40 MG, TID
     Dates: start: 201101
  2. OXYCONTIN (NDA 22-272) [Suspect]
     Dosage: 20 MG, TID
     Dates: start: 201101

REACTIONS (3)
  - Cardiovascular disorder [Unknown]
  - Pain in extremity [Unknown]
  - Inadequate analgesia [Unknown]
